FAERS Safety Report 4914859-2 (Version None)
Quarter: 2006Q1

REPORT INFORMATION
  Report Type: 
  Country: None (occurrence: None)
  Receive Date: 20060217
  Receipt Date: 20060208
  Transmission Date: 20060701
  Serious: Yes (Other)
  Sender: FDA-Public Use
  Company Number: IE-JNJFOC-20060201869

PATIENT
  Sex: Male

DRUGS (6)
  1. DURAGESIC-50 [Suspect]
     Indication: DRUG USE FOR UNKNOWN INDICATION
     Route: 062
     Dates: start: 20051226, end: 20051228
  2. PARALIEF [Concomitant]
     Route: 065
  3. GABAPENTIN [Concomitant]
     Route: 065
  4. ZYDOL [Concomitant]
     Route: 065
  5. DIAMICRON MR [Concomitant]
     Route: 065
  6. CALCIUM ACETATE [Concomitant]
     Route: 065

REACTIONS (5)
  - CONFUSIONAL STATE [None]
  - DELIRIUM [None]
  - HYPOTENSION [None]
  - MIOSIS [None]
  - SOMNOLENCE [None]
